FAERS Safety Report 5660768-3 (Version None)
Quarter: 2008Q1

REPORT INFORMATION
  Report Type: 
  Country: None (occurrence: None)
  Receive Date: 20080311
  Receipt Date: 20080303
  Transmission Date: 20080703
  Serious: Yes (Hospitalization, Other)
  Sender: FDA-Public Use
  Company Number: US-ELI_LILLY_AND_COMPANY-US200712001781

PATIENT
  Sex: Female

DRUGS (7)
  1. BYETTA [Suspect]
     Indication: TYPE 2 DIABETES MELLITUS
     Dosage: 5 UG, 2/D
     Route: 058
     Dates: start: 20070901
  2. SYNTHROID [Concomitant]
     Dosage: UNK, UNKNOWN
     Dates: start: 19770101
  3. AMARYL [Concomitant]
     Indication: TYPE 2 DIABETES MELLITUS
     Dosage: UNK, DAILY (1/D)
  4. METFORMIN HCL [Concomitant]
     Indication: TYPE 2 DIABETES MELLITUS
     Dosage: 1000 MG, 2/D
  5. LANTUS [Concomitant]
     Indication: TYPE 2 DIABETES MELLITUS
     Dosage: 8 U, DAILY (1/D)
     Route: 058
     Dates: start: 20070901, end: 20071205
  6. ASPIRIN [Concomitant]
     Indication: MENOPAUSE
     Dosage: UNK, DAILY (1/D)
  7. ANTIHYPERTENSIVES [Concomitant]
     Indication: BLOOD PRESSURE
     Dosage: UNK, UNKNOWN
     Dates: start: 20020101

REACTIONS (7)
  - ARTHRITIS [None]
  - BLOOD GLUCOSE DECREASED [None]
  - DISTURBANCE IN ATTENTION [None]
  - HYPERGLYCAEMIA [None]
  - INSOMNIA [None]
  - PROCEDURAL PAIN [None]
  - TREMOR [None]
